FAERS Safety Report 11899528 (Version 1)
Quarter: 2016Q1

REPORT INFORMATION
  Report Type: Report from Study
  Country: US (occurrence: US)
  Receive Date: 20160108
  Receipt Date: 20160108
  Transmission Date: 20160526
  Serious: No
  Sender: FDA-Public Use
  Company Number: US-ABBVIE-15P-163-1444824-00

PATIENT
  Age: 54 Year
  Sex: Male
  Weight: 68.1 kg

DRUGS (6)
  1. RESTORIL [Concomitant]
     Active Substance: TEMAZEPAM
     Indication: INSOMNIA
  2. VIEKIRA PAK [Suspect]
     Active Substance: DASABUVIR\OMBITASVIR\PARITAPREVIR\RITONAVIR
     Indication: CHRONIC HEPATITIS C
     Dosage: APPROXIMATELY 4 WEEKS
     Route: 048
     Dates: start: 201507
  3. LOSARTAN. [Concomitant]
     Active Substance: LOSARTAN
     Indication: RENAL HYPERTENSION
  4. XIFAXAN [Concomitant]
     Active Substance: RIFAXIMIN
     Indication: LIVER DISORDER
  5. VICOPROFEN [Concomitant]
     Active Substance: HYDROCODONE BITARTRATE\IBUPROFEN
     Indication: PAIN
  6. VITAMIN D3 [Concomitant]
     Active Substance: CHOLECALCIFEROL
     Indication: VITAMIN SUPPLEMENTATION

REACTIONS (1)
  - Hallucination [Recovered/Resolved]

NARRATIVE: CASE EVENT DATE: 20150811
